FAERS Safety Report 15227760 (Version 1)
Quarter: 2018Q3

REPORT INFORMATION
  Report Type: Spontaneous
  Country: US (occurrence: US)
  Receive Date: 20180706
  Receipt Date: 20180706
  Transmission Date: 20181010
  Serious: No
  Sender: FDA-Public Use
  Company Number: None

PATIENT
  Age: 27 Year
  Sex: Female

DRUGS (1)
  1. TUBERCULIN DERIVATIVE PPD [Suspect]
     Active Substance: TUBERCULIN PURIFIED PROTEIN DERIVATIVE

REACTIONS (7)
  - Muscle rigidity [None]
  - Seizure [None]
  - Tongue disorder [None]
  - Syncope [None]
  - Posturing [None]
  - Urinary incontinence [None]
  - Loss of consciousness [None]
